FAERS Safety Report 20900405 (Version 1)
Quarter: 2022Q2

REPORT INFORMATION
  Report Type: Spontaneous
  Country: US (occurrence: None)
  Receive Date: 20220531
  Receipt Date: 20220531
  Transmission Date: 20220721
  Serious: Yes (unspecified)
  Sender: FDA-Public Use
  Company Number: None

PATIENT
  Age: 62 Year
  Sex: Male
  Weight: 96.75 kg

DRUGS (1)
  1. BELBUCA [Suspect]
     Active Substance: BUPRENORPHINE HYDROCHLORIDE
     Indication: Pain
     Dosage: FREQUENCY : EVERY 12 HOURS;?OTHER ROUTE : BETWEEN CHECK AND GUM;?
     Route: 050
     Dates: start: 20211104, end: 20220425

REACTIONS (1)
  - Tooth disorder [None]
